FAERS Safety Report 8124449 (Version 2)
Quarter: 2013Q1

REPORT INFORMATION
  Report Type: Spontaneous
  Country: US (occurrence: US)
  Receive Date: 20110907
  Receipt Date: 20130329
  Transmission Date: 20140127
  Serious: Yes (Other)
  Sender: FDA-Public Use
  Company Number: US-GLAXOSMITHKLINE-B0705225A

PATIENT
  Age: 64 Year
  Sex: Male
  Weight: 110.9 kg

DRUGS (4)
  1. AVANDIA [Suspect]
     Indication: DIABETES MELLITUS
     Dosage: 8MG PER DAY
     Route: 048
     Dates: start: 20050629, end: 20110926
  2. DIGITEK [Concomitant]
  3. LOTENSIN [Concomitant]
  4. INSULIN [Concomitant]

REACTIONS (4)
  - Cardiac failure congestive [Not Recovered/Not Resolved]
  - Catheterisation cardiac [Unknown]
  - Pain [Unknown]
  - Dyspnoea [Unknown]
